FAERS Safety Report 20637095 (Version 2)
Quarter: 2023Q2

REPORT INFORMATION
  Report Type: Spontaneous
  Country: CA (occurrence: CA)
  Receive Date: 20220325
  Receipt Date: 20230424
  Transmission Date: 20230722
  Serious: Yes (Death, Other)
  Sender: FDA-Public Use
  Company Number: CA-ORGANON-O2203CAN001841

PATIENT
  Age: 28 Week
  Weight: 1 kg

DRUGS (5)
  1. COZAAR [Suspect]
     Active Substance: LOSARTAN POTASSIUM
     Indication: Product used for unknown indication
     Dosage: UNK
     Route: 064
  2. COZAAR [Suspect]
     Active Substance: LOSARTAN POTASSIUM
     Indication: Maternal exposure timing unspecified
  3. LASIX [Suspect]
     Active Substance: FUROSEMIDE
     Indication: Maternal exposure timing unspecified
     Dosage: UNK (DOSAGE FORM: NOT SPECIFIED)
     Route: 064
  4. PERINDOPRIL [Suspect]
     Active Substance: PERINDOPRIL
     Indication: Maternal exposure timing unspecified
     Dosage: UNK
     Route: 064
  5. SPIRONOLACTONE [Suspect]
     Active Substance: SPIRONOLACTONE
     Indication: Maternal exposure timing unspecified
     Dosage: UNK
     Route: 064

REACTIONS (5)
  - Renal tubular disorder [Fatal]
  - Foetal exposure during pregnancy [Fatal]
  - Angiotensin converting enzyme inhibitor foetopathy [Fatal]
  - Hypocalvaria [Fatal]
  - Oligohydramnios [Fatal]
